FAERS Safety Report 9800348 (Version 1)
Quarter: 2014Q1

REPORT INFORMATION
  Report Type: Spontaneous
  Country: IR (occurrence: IR)
  Receive Date: 20140106
  Receipt Date: 20140106
  Transmission Date: 20141002
  Serious: Yes (Other)
  Sender: FDA-Public Use
  Company Number: IR-ROCHE-1329618

PATIENT
  Sex: Male

DRUGS (1)
  1. MABTHERA [Suspect]
     Indication: DERMATOMYOSITIS
     Route: 041
     Dates: start: 201312, end: 201312

REACTIONS (1)
  - Pulmonary haemorrhage [Unknown]
